FAERS Safety Report 21990526 (Version 1)
Quarter: 2023Q1

REPORT INFORMATION
  Report Type: Spontaneous
  Country: US (occurrence: None)
  Receive Date: 20230213
  Receipt Date: 20230213
  Transmission Date: 20230418
  Serious: Yes (Other)
  Sender: FDA-Public Use
  Company Number: None

PATIENT
  Age: 69 Year
  Sex: Female
  Weight: 55.35 kg

DRUGS (4)
  1. COPAXONE [Suspect]
     Active Substance: GLATIRAMER ACETATE
     Indication: Multiple sclerosis
     Dosage: OTHER QUANTITY : 1 INJECTION(S);?OTHER FREQUENCY : 3X WEEKLY;?
     Route: 058
     Dates: start: 20030201
  2. LEXIPRO [Concomitant]
  3. LEVOTHYROXINE [Concomitant]
     Active Substance: LEVOTHYROXINE
  4. CITRIC BERGAMOT [Concomitant]

REACTIONS (4)
  - Chest pain [None]
  - Chest discomfort [None]
  - Flushing [None]
  - Flushing [None]

NARRATIVE: CASE EVENT DATE: 20230212
